FAERS Safety Report 9924866 (Version 1)
Quarter: 2014Q1

REPORT INFORMATION
  Report Type: Spontaneous
  Country: US (occurrence: None)
  Receive Date: 20140224
  Receipt Date: 20140224
  Transmission Date: 20141002
  Serious: Yes (Hospitalization)
  Sender: FDA-Public Use
  Company Number: None

PATIENT
  Sex: Male

DRUGS (2)
  1. ZYTIGA 250MG JANSSEN BIOTECH INC [Suspect]
     Route: 048
     Dates: start: 20130228, end: 201402
  2. PREDNISONE [Suspect]
     Route: 048
     Dates: start: 20130306, end: 201402

REACTIONS (1)
  - Hospitalisation [None]
